FAERS Safety Report 6948573-9 (Version None)
Quarter: 2010Q3

REPORT INFORMATION
  Report Type: 
  Country: None (occurrence: None)
  Receive Date: 20100828
  Receipt Date: 20091112
  Transmission Date: 20110219
  Serious: No
  Sender: FDA-Public Use
  Company Number: US-ABBOTT-09P-163-0609305-00

PATIENT
  Sex: Male
  Weight: 118.04 kg

DRUGS (6)
  1. NIASPAN [Suspect]
     Indication: BLOOD TRIGLYCERIDES INCREASED
     Dosage: 2000 TWO WEEKS
     Route: 048
     Dates: start: 20091001, end: 20091001
  2. NIASPAN [Suspect]
     Route: 048
     Dates: start: 20091001, end: 20091001
  3. NIASPAN [Suspect]
     Route: 048
     Dates: start: 20091001
  4. TRICOR [Suspect]
     Indication: BLOOD CHOLESTEROL INCREASED
     Route: 048
     Dates: start: 20091001
  5. HYZAAR [Concomitant]
     Indication: HYPERTENSION
     Dosage: 50-12.5MG
     Route: 048
  6. ASPIRIN [Concomitant]
     Indication: PROPHYLAXIS
     Route: 048

REACTIONS (4)
  - BLOOD TRIGLYCERIDES INCREASED [None]
  - DIZZINESS [None]
  - PAIN [None]
  - PRURITUS [None]
